FAERS Safety Report 16091254 (Version 1)
Quarter: 2019Q1

REPORT INFORMATION
  Report Type: Spontaneous
  Country: ES (occurrence: ES)
  Receive Date: 20190319
  Receipt Date: 20190319
  Transmission Date: 20190418
  Serious: Yes (Other)
  Sender: FDA-Public Use
  Company Number: ES-BAYER-2019-022055

PATIENT
  Age: 55 Year
  Sex: Female

DRUGS (1)
  1. STIVARGA [Suspect]
     Active Substance: REGORAFENIB
     Indication: ADENOCARCINOMA OF COLON
     Dosage: 120 MG, QD
     Dates: start: 201508, end: 201512

REACTIONS (12)
  - Abdominal pain upper [None]
  - Rash [None]
  - Asthenia [None]
  - Palmar-plantar erythrodysaesthesia syndrome [Recovered/Resolved]
  - Systolic hypertension [Recovered/Resolved]
  - Anaemia [None]
  - Diarrhoea [None]
  - Proteinuria [Recovered/Resolved]
  - Palmar-plantar erythrodysaesthesia syndrome [None]
  - Metastases to peritoneum [None]
  - Metastases to lymph nodes [None]
  - Dysphonia [None]

NARRATIVE: CASE EVENT DATE: 2015
